FAERS Safety Report 11643290 (Version 1)
Quarter: 2015Q4

REPORT INFORMATION
  Report Type: Report from Study
  Country: CA (occurrence: CA)
  Receive Date: 20151020
  Receipt Date: 20151020
  Transmission Date: 20160304
  Serious: Yes (Death, Hospitalization)
  Sender: FDA-Public Use
  Company Number: PHHY2015CA082664

PATIENT
  Age: 57 Year
  Sex: Female

DRUGS (2)
  1. SANDOSTATIN LAR DEPOT [Suspect]
     Active Substance: OCTREOTIDE ACETATE
     Indication: METASTASES TO BREAST
  2. SANDOSTATIN LAR DEPOT [Suspect]
     Active Substance: OCTREOTIDE ACETATE
     Indication: MALIGNANT PERITONEAL NEOPLASM
     Dosage: 20 MG, ONCE A MONTH
     Route: 030
     Dates: start: 20150605, end: 20150812

REACTIONS (7)
  - Underdose [Unknown]
  - Off label use [Unknown]
  - Abdominal distension [Recovering/Resolving]
  - Peripheral swelling [Unknown]
  - Ascites [Unknown]
  - Blood pressure decreased [Unknown]
  - Death [Fatal]

NARRATIVE: CASE EVENT DATE: 20150703
